FAERS Safety Report 9139440 (Version 1)
Quarter: 2013Q1

REPORT INFORMATION
  Report Type: Spontaneous
  Country: US (occurrence: None)
  Receive Date: 20130205
  Receipt Date: 20130205
  Transmission Date: 20140127
  Serious: Yes (Death)
  Sender: FDA-Public Use
  Company Number: IMP_06188_2013

PATIENT
  Age: 50 Year
  Sex: Female

DRUGS (4)
  1. BUPROPION [Suspect]
     Indication: PRODUCT USED FOR UNKNOWN INDICATION
  2. AMPHETAMINE [Suspect]
  3. DIAZEPAM [Suspect]
  4. DIPHENHYDRAMINE [Suspect]

REACTIONS (3)
  - Poisoning [None]
  - Respiratory arrest [None]
  - Cardiac arrest [None]
